FAERS Safety Report 17306067 (Version 2)
Quarter: 2020Q3

REPORT INFORMATION
  Report Type: Spontaneous
  Country: FR (occurrence: FR)
  Receive Date: 20200123
  Receipt Date: 20200901
  Transmission Date: 20201102
  Serious: Yes (Hospitalization)
  Sender: FDA-Public Use
  Company Number: FR-MYLANLABS-2020M1006761

PATIENT
  Age: 92 Year
  Sex: Female

DRUGS (1)
  1. EFUDIX [Suspect]
     Active Substance: FLUOROURACIL
     Indication: LIMB INJURY
     Dosage: NON PR?CIS?
     Route: 003
     Dates: start: 201906

REACTIONS (1)
  - Wound complication [Unknown]

NARRATIVE: CASE EVENT DATE: 2019
